FAERS Safety Report 8857541 (Version 2)
Quarter: 2012Q4

REPORT INFORMATION
  Report Type: 
  Country: JP (occurrence: JP)
  Receive Date: 20121024
  Receipt Date: 20121101
  Transmission Date: 20130627
  Serious: Yes (Death)
  Sender: FDA-Public Use
  Company Number: JP-GLAXOSMITHKLINE-B0838932A

PATIENT
  Age: 67 Year
  Sex: Male

DRUGS (1)
  1. PAXIL [Suspect]
     Indication: PANIC DISORDER
     Dosage: 12.5MG Per day
     Route: 048
     Dates: start: 20121011

REACTIONS (1)
  - Completed suicide [Fatal]
